FAERS Safety Report 12651672 (Version 1)
Quarter: 2016Q3

REPORT INFORMATION
  Report Type: Spontaneous
  Country: US (occurrence: None)
  Receive Date: 20160812
  Receipt Date: 20160812
  Transmission Date: 20161109
  Serious: Yes (Hospitalization)
  Sender: FDA-Public Use
  Company Number: None

PATIENT
  Age: 58 Year
  Sex: Male

DRUGS (3)
  1. MAGNESIUM [Concomitant]
     Active Substance: MAGNESIUM
  2. COUMADIN [Concomitant]
     Active Substance: WARFARIN SODIUM
  3. EXJADE [Suspect]
     Active Substance: DEFERASIROX
     Indication: HAEMOCHROMATOSIS
     Route: 048
     Dates: start: 20140424

REACTIONS (2)
  - Sickle cell anaemia with crisis [None]
  - Drug dose omission [None]

NARRATIVE: CASE EVENT DATE: 201607
